FAERS Safety Report 8381867-1 (Version None)
Quarter: 2012Q2

REPORT INFORMATION
  Report Type: 
  Country: None (occurrence: None)
  Receive Date: 20120522
  Receipt Date: 20120522
  Transmission Date: 20120825
  Serious: Yes (Other)
  Sender: FDA-Public Use
  Company Number: None

PATIENT
  Sex: Female
  Weight: 49.8957 kg

DRUGS (9)
  1. CALCIUM CARBONATE [Concomitant]
  2. AMITRIPTYLINE HCL [Concomitant]
  3. LUPRON DEPOT [Suspect]
     Indication: ENDOMETRIOSIS
     Dosage: 11.25 MG ONCE IM
     Route: 030
  4. LAPAROSCOPY [Concomitant]
  5. ZONISAMIDE [Concomitant]
  6. SINGULAIR [Concomitant]
  7. MIGRANAL [Concomitant]
  8. REGLAN [Concomitant]
  9. AYGESTIN [Concomitant]

REACTIONS (1)
  - ANAPHYLACTIC REACTION [None]
